FAERS Safety Report 5895413-5 (Version None)
Quarter: 2008Q3

REPORT INFORMATION
  Report Type: 
  Country: None (occurrence: None)
  Receive Date: 20080922
  Receipt Date: 20080911
  Transmission Date: 20090109
  Serious: Yes (Other)
  Sender: FDA-Public Use
  Company Number: GXKR2008GB08755

PATIENT
  Age: 50 Year
  Sex: Male

DRUGS (3)
  1. METRONIDAZOLE [Suspect]
     Indication: INFECTION
     Dosage: 400 MG, ORAL
     Route: 048
     Dates: start: 20080822, end: 20080829
  2. CLARITHROMYCIN [Concomitant]
  3. OMEPRAZOLE [Concomitant]

REACTIONS (1)
  - ANGIOEDEMA [None]
